FAERS Safety Report 8991294 (Version 1)
Quarter: 2012Q4

REPORT INFORMATION
  Report Type: Report from Study
  Country: US (occurrence: US)
  Receive Date: 20121231
  Receipt Date: 20121231
  Transmission Date: 20130627
  Serious: Yes (Hospitalization, Other)
  Sender: FDA-Public Use
  Company Number: US-ROCHE-1172938

PATIENT
  Age: 64 Year
  Sex: Male
  Weight: 60.5 kg

DRUGS (5)
  1. BEVACIZUMAB [Suspect]
     Indication: COLON CANCER
     Dosage: over 30-90 minutes on day 1. last dose prior to event was given on 27/Mar/2007
     Route: 042
     Dates: start: 20061024
  2. OXALIPLATIN [Suspect]
     Indication: COLON CANCER
     Dosage: over 2 hours on day 1. last dose prior to event was given on 27/Mar/2007
     Route: 042
     Dates: start: 20061024
  3. LEUCOVORIN [Suspect]
     Indication: COLON CANCER
     Dosage: over 2 hours on day 1. last dose prior to event was given on 27/Mar/2007
     Route: 042
     Dates: start: 20061024
  4. 5-FU [Suspect]
     Indication: COLON CANCER
     Dosage: bolus on day 1, last dose prior to event was given on 27/Mar/2007
     Route: 042
  5. 5-FU [Suspect]
     Dosage: CIV over 46 hours starting on day 1
     Route: 042
     Dates: start: 20061024

REACTIONS (4)
  - Infection [Unknown]
  - Diarrhoea [Unknown]
  - Enterocolitis [Unknown]
  - Hypophosphataemia [Unknown]
